FAERS Safety Report 8267859-1 (Version None)
Quarter: 2012Q2

REPORT INFORMATION
  Report Type: 
  Country: None (occurrence: None)
  Receive Date: 20120405
  Receipt Date: 20120405
  Transmission Date: 20120825
  Serious: Yes (Other)
  Sender: FDA-Public Use
  Company Number: None

PATIENT
  Age: 78 Year
  Sex: Female
  Weight: 71.2147 kg

DRUGS (1)
  1. LEVOTHYROXINE SODIUM [Suspect]
     Indication: HYPOTHYROIDISM
     Dosage: 125MCG QD ORAL
     Route: 048
     Dates: start: 20101124, end: 20111206

REACTIONS (2)
  - PALPITATIONS [None]
  - THYROID FUNCTION TEST ABNORMAL [None]
